FAERS Safety Report 10390008 (Version 1)
Quarter: 2014Q1

REPORT INFORMATION
  Report Type: Spontaneous
  Country: US (occurrence: None)
  Receive Date: 20140306
  Receipt Date: 20140306
  Transmission Date: 20141002
  Serious: Yes (Hospitalization)
  Sender: FDA-Public Use
  Company Number: 163-21880-13012366

PATIENT
  Age: 67 Year
  Sex: Female
  Weight: 64.86 kg

DRUGS (11)
  1. REVLIMID (LENALIDOMIDE) (25 MILLIGRAM, CAPSULES) [Suspect]
     Indication: PLASMA CELL MYELOMA
     Route: 048
     Dates: start: 20111213, end: 2012
  2. ACYCLOVIR (ACICLOVIR) [Concomitant]
  3. BACTRIM DS (BACTRIM) [Concomitant]
  4. CLONAZEPAM (CLONAZEPAM) [Concomitant]
  5. DEXAMETHASONE (DEXAMETHASONE) [Concomitant]
  6. FOLIC ACID (FOLIC ACID) [Concomitant]
  7. GABAPENTIN (GABAPENTIN) [Concomitant]
  8. LANSOPRAZOLE (LANSOPRAZOLE) [Concomitant]
  9. LORAZEPAM (LORAZEPAM) [Concomitant]
  10. MAGNESIUM OXIDE (MAGNESIUIM OXIDE) [Concomitant]
  11. MULTIVITAMINS (MULTIVITAMINS) [Concomitant]

REACTIONS (2)
  - Gastritis viral [None]
  - Dehydration [None]
